APPROVED DRUG PRODUCT: FLUDARA
Active Ingredient: FLUDARABINE PHOSPHATE
Strength: 50MG/VIAL **Federal Register determination that product was not discontinued or withdrawn for safety or effectiveness reasons**
Dosage Form/Route: INJECTABLE;INJECTION
Application: N020038 | Product #001
Applicant: GENZYME CORP
Approved: Apr 18, 1991 | RLD: Yes | RS: No | Type: DISCN